FAERS Safety Report 7927281-1 (Version None)
Quarter: 2011Q4

REPORT INFORMATION
  Report Type: 
  Country: None (occurrence: None)
  Receive Date: 20111118
  Receipt Date: 20111107
  Transmission Date: 20120403
  Serious: Yes (Other)
  Sender: FDA-Public Use
  Company Number: PHHY2011DE60739

PATIENT
  Age: 47 Year
  Sex: Male

DRUGS (1)
  1. AMLODIPINE BESYLATE AND VALSARTAN [Suspect]
     Dosage: 1 DF, QD
     Route: 048
     Dates: start: 20110301

REACTIONS (2)
  - EYE OEDEMA [None]
  - RETINAL VEIN THROMBOSIS [None]
